FAERS Safety Report 9580373 (Version 1)
Quarter: 2013Q3

REPORT INFORMATION
  Report Type: Spontaneous
  Country: US (occurrence: None)
  Receive Date: 20130916
  Receipt Date: 20130916
  Transmission Date: 20140515
  Serious: Yes (Other)
  Sender: FDA-Public Use
  Company Number: JPI-P-032055

PATIENT
  Age: 4 Decade
  Sex: Female

DRUGS (1)
  1. XYREM [Suspect]
     Indication: CATAPLEXY
     Route: 048

REACTIONS (3)
  - Depression [None]
  - Thyroid disorder [None]
  - Decreased interest [None]
